FAERS Safety Report 13897573 (Version 1)
Quarter: 2017Q3

REPORT INFORMATION
  Report Type: Spontaneous
  Country: BR (occurrence: BR)
  Receive Date: 20170823
  Receipt Date: 20170823
  Transmission Date: 20171127
  Serious: Yes (Death, Hospitalization, Other)
  Sender: FDA-Public Use
  Company Number: BR-MYLANLABS-2017M1051871

PATIENT

DRUGS (6)
  1. BETAMETHASONE. [Suspect]
     Active Substance: BETAMETHASONE
     Indication: DERMATITIS ATOPIC
     Route: 030
  2. BETAMETHASONE DIPROPIONATE W/KETOCONAZOLE/NEO [Suspect]
     Active Substance: BETAMETHASONE\KETOCONAZOLE\NEOMYCIN
     Indication: DERMATITIS ATOPIC
     Route: 061
  3. PREDNISOLONE. [Suspect]
     Active Substance: PREDNISOLONE
     Indication: DERMATITIS ATOPIC
     Dosage: 0.8MG/KG/DAY
     Route: 048
  4. ZINC OXIDE. [Concomitant]
     Active Substance: ZINC OXIDE
     Indication: PRODUCT USED FOR UNKNOWN INDICATION
  5. BISMUTH SUBGALLATE [Concomitant]
     Active Substance: BISMUTH SUBGALLATE
     Indication: PRODUCT USED FOR UNKNOWN INDICATION
     Route: 061
  6. POTASSIUM PERMANGANATE [Concomitant]
     Active Substance: POTASSIUM PERMANGANATE
     Indication: PRODUCT USED FOR UNKNOWN INDICATION
     Route: 061

REACTIONS (4)
  - Cardiac arrest [Fatal]
  - Septic shock [Fatal]
  - Acarodermatitis [Fatal]
  - Sepsis [Fatal]
